FAERS Safety Report 22300187 (Version 1)
Quarter: 2023Q2

REPORT INFORMATION
  Report Type: Spontaneous
  Country: US (occurrence: US)
  Receive Date: 20230509
  Receipt Date: 20230509
  Transmission Date: 20230722
  Serious: No
  Sender: FDA-Public Use
  Company Number: US-BIOGEN-2023BI01203722

PATIENT
  Sex: Male

DRUGS (4)
  1. TYSABRI [Suspect]
     Active Substance: NATALIZUMAB
     Indication: Multiple sclerosis
     Route: 050
  2. WARFARIN [Concomitant]
     Active Substance: WARFARIN
     Route: 050
  3. PULMICORT TURBUHALER [Concomitant]
     Active Substance: BUDESONIDE
     Route: 050
  4. ALBUTEROL [Concomitant]
     Active Substance: ALBUTEROL
     Route: 050

REACTIONS (1)
  - Loss of control of legs [Unknown]
